FAERS Safety Report 6377557-7 (Version None)
Quarter: 2009Q3

REPORT INFORMATION
  Report Type: 
  Country: None (occurrence: None)
  Receive Date: 20090923
  Receipt Date: 20090923
  Transmission Date: 20100115
  Serious: Yes (Life-Threatening, Hospitalization)
  Sender: FDA-Public Use
  Company Number: None

PATIENT
  Age: 21 Year
  Sex: Female
  Weight: 70.3 kg

DRUGS (4)
  1. VICODIN [Suspect]
     Indication: SUICIDE ATTEMPT
     Dosage: 5/500MG X 1 PO
     Route: 048
     Dates: start: 20090805
  2. ALBUTEROL [Concomitant]
  3. PREDNISONE TAB [Concomitant]
  4. IMURAN [Concomitant]

REACTIONS (3)
  - ALANINE AMINOTRANSFERASE INCREASED [None]
  - ASPARTATE AMINOTRANSFERASE INCREASED [None]
  - OVERDOSE [None]
